FAERS Safety Report 9753310 (Version 2)
Quarter: 2014Q1

REPORT INFORMATION
  Report Type: Spontaneous
  Country: IT (occurrence: IT)
  Receive Date: 20131213
  Receipt Date: 20140219
  Transmission Date: 20141002
  Serious: Yes (Hospitalization)
  Sender: FDA-Public Use
  Company Number: IT-PFIZER INC-2013353425

PATIENT
  Age: 71 Year
  Sex: Male

DRUGS (8)
  1. TYGACIL [Suspect]
     Indication: LIVER ABSCESS
     Dosage: 100 MG, DAILY
     Route: 041
     Dates: start: 20131127, end: 20131204
  2. METRONIDAZOLE [Concomitant]
     Dosage: 1 G, UNK
     Route: 048
  3. LEVOXACIN [Concomitant]
     Dosage: 750 MG, UNK
     Route: 048
  4. TARGOSID [Concomitant]
     Dosage: 600 MG, UNK
     Route: 041
  5. PERFALGAN [Concomitant]
  6. PRITOR [Concomitant]
     Dosage: 80 MG, UNK
  7. AZATHIOPRINE ASPEN [Concomitant]
     Dosage: 200 MG, UNK
     Route: 048
  8. TAVOR [Concomitant]
     Dosage: 1 DF, UNK

REACTIONS (1)
  - Pancytopenia [Not Recovered/Not Resolved]
